FAERS Safety Report 7212103-7 (Version None)
Quarter: 2010Q4

REPORT INFORMATION
  Report Type: 
  Country: None (occurrence: None)
  Receive Date: 20101227
  Receipt Date: 20101210
  Transmission Date: 20110411
  Serious: Yes (Hospitalization)
  Sender: FDA-Public Use
  Company Number: IPC201012-000325

PATIENT
  Age: 67 Year
  Sex: Female

DRUGS (6)
  1. METFORMIN HCL [Suspect]
     Indication: TYPE 2 DIABETES MELLITUS
  2. METOPROLOL TARTRATE [Suspect]
  3. ASPIRIN [Suspect]
  4. LISINOPRIL [Suspect]
  5. HYDROCODONE BITARTRATE AND ACETAMINOPHEN [Suspect]
  6. CLOPIDOGREL [Suspect]

REACTIONS (7)
  - AREFLEXIA [None]
  - BLINDNESS TRANSIENT [None]
  - HAEMODIALYSIS [None]
  - HEART RATE DECREASED [None]
  - HYPOTHERMIA [None]
  - LACTIC ACIDOSIS [None]
  - POISONING [None]
